FAERS Safety Report 13819359 (Version 2)
Quarter: 2018Q1

REPORT INFORMATION
  Report Type: Report from Study
  Country: US (occurrence: US)
  Receive Date: 20170731
  Receipt Date: 20180201
  Transmission Date: 20180508
  Serious: No
  Sender: FDA-Public Use
  Company Number: US-EXELIXIS-CABO-17009015

PATIENT
  Sex: Male
  Weight: 77.7 kg

DRUGS (11)
  1. MAGNESIUM [Concomitant]
     Active Substance: MAGNESIUM
  2. VITAMIN B [Concomitant]
     Active Substance: VITAMIN B
  3. AMIODARONE [Concomitant]
     Active Substance: AMIODARONE
  4. XARELTO [Concomitant]
     Active Substance: RIVAROXABAN
  5. LEVOTHYROXINE. [Concomitant]
     Active Substance: LEVOTHYROXINE
  6. CABOMETYX [Suspect]
     Active Substance: CABOZANTINIB S-MALATE
     Indication: RENAL CANCER
     Dosage: 60 MG, QD
     Route: 048
     Dates: start: 20170414
  7. TRAMADOL. [Concomitant]
     Active Substance: TRAMADOL
  8. CRESTOR [Concomitant]
     Active Substance: ROSUVASTATIN CALCIUM
  9. FLECTOR [Concomitant]
     Active Substance: DICLOFENAC EPOLAMINE
  10. CALCIUM [Concomitant]
     Active Substance: CALCIUM
  11. LUNESTA [Concomitant]
     Active Substance: ESZOPICLONE

REACTIONS (1)
  - Back pain [Unknown]
